FAERS Safety Report 13316944 (Version 6)
Quarter: 2025Q2

REPORT INFORMATION
  Report Type: Report from Study
  Country: DE (occurrence: DE)
  Receive Date: 20170310
  Receipt Date: 20250408
  Transmission Date: 20250717
  Serious: Yes (Hospitalization)
  Sender: AMGEN
  Company Number: DE-AMGEN-DEUNI2017034246

PATIENT
  Age: 77 Year
  Sex: Male
  Weight: 78 kg

DRUGS (25)
  1. CARFILZOMIB [Suspect]
     Active Substance: CARFILZOMIB
     Indication: Plasma cell myeloma
     Route: 040
     Dates: start: 20161107, end: 20161108
  2. CARFILZOMIB [Suspect]
     Active Substance: CARFILZOMIB
     Route: 040
     Dates: start: 20161114, end: 20170307
  3. CARFILZOMIB [Suspect]
     Active Substance: CARFILZOMIB
     Route: 040
     Dates: start: 20170327, end: 20170524
  4. REVLIMID [Suspect]
     Active Substance: LENALIDOMIDE
     Indication: Plasma cell myeloma
     Route: 065
     Dates: start: 20161108, end: 20170612
  5. DEXAMETHASONE [Suspect]
     Active Substance: DEXAMETHASONE
     Indication: Plasma cell myeloma
     Route: 065
     Dates: start: 20161107
  6. DEXAMETHASONE [Suspect]
     Active Substance: DEXAMETHASONE
     Route: 065
     Dates: start: 20170220
  7. DEXAMETHASONE [Suspect]
     Active Substance: DEXAMETHASONE
     Route: 065
     Dates: start: 20170227
  8. XGEVA [Concomitant]
     Active Substance: DENOSUMAB
     Indication: Prophylaxis
     Dosage: 120 MILLIGRAM, QMO
     Route: 065
     Dates: start: 20180111
  9. PANTOPRAZOLE SODIUM [Concomitant]
     Active Substance: PANTOPRAZOLE SODIUM
     Indication: Prophylaxis
     Dosage: 40 MG, QD
     Dates: start: 201504
  10. BUDESONIDE [Concomitant]
     Active Substance: BUDESONIDE
     Indication: Chronic obstructive pulmonary disease
     Dosage: 0.4 MG, BID
  11. Cyclocaps salbutamol [Concomitant]
     Indication: Chronic obstructive pulmonary disease
     Dosage: 200 MG, QD
  12. VITAMIN B12 [Concomitant]
     Active Substance: CYANOCOBALAMIN
     Indication: Anaemia
     Dosage: 1000 MG, QMO
     Dates: start: 2015
  13. RANEXA [Concomitant]
     Active Substance: RANOLAZINE
     Indication: Coronary artery disease
     Dosage: 375 MG, BID
     Route: 065
     Dates: start: 201504
  14. ACYCLOVIR [Concomitant]
     Active Substance: ACYCLOVIR
     Indication: Prophylaxis
     Dosage: 200 MG, TID
     Dates: start: 20161107
  15. ENOXAPARIN SODIUM [Concomitant]
     Active Substance: ENOXAPARIN SODIUM
     Indication: Prophylaxis
     Dosage: 40 MG, QD
     Dates: start: 20161108, end: 20220824
  16. PAMIDRONATE DISODIUM [Concomitant]
     Active Substance: PAMIDRONATE DISODIUM
     Indication: Prophylaxis
     Dosage: 60 MG, QMO
     Dates: start: 20150522, end: 20171219
  17. CALCIUM CARBONATE\CHOLECALCIFEROL [Concomitant]
     Active Substance: CALCIUM CARBONATE\CHOLECALCIFEROL
     Indication: Prophylaxis
     Dosage: 880 INTERNATIONAL UNIT, QD, (1000/880 IE)
     Dates: start: 20170110
  18. Axigran [Concomitant]
     Indication: Prophylaxis
     Dates: start: 20161107, end: 20201119
  19. Formo [Concomitant]
     Indication: Chronic obstructive pulmonary disease
     Dosage: 12 MICROGRAM, BID
  20. TORSEMIDE [Concomitant]
     Active Substance: TORSEMIDE
     Indication: Chronic kidney disease
     Dosage: 5 MILLIGRAM, QD
     Route: 065
     Dates: start: 20171205
  21. FOLIC ACID [Concomitant]
     Active Substance: FOLIC ACID
     Indication: Prophylaxis
     Dosage: 5 MILLIGRAM, QD
     Route: 048
     Dates: start: 20170328
  22. Oxycodon/Naloxon Aristo [Concomitant]
     Dosage: 10 MILLIGRAM, BID
     Route: 065
     Dates: start: 20190409
  23. ASPIRIN [Concomitant]
     Active Substance: ASPIRIN
     Indication: Prophylaxis
     Dosage: 100 MILLIGRAM, QD
     Route: 065
     Dates: start: 20200826
  24. Alfacalcidol Medice [Concomitant]
     Indication: Chronic kidney disease
     Dosage: 0.25 MICROGRAM, QD
     Route: 065
     Dates: start: 20211006
  25. PRIVIGEN [Concomitant]
     Active Substance: HUMAN IMMUNOGLOBULIN G
     Indication: Prophylaxis
     Dosage: 200 MILLIGRAM, QMO
     Route: 065
     Dates: start: 20200724

REACTIONS (5)
  - Pancytopenia [Recovered/Resolved]
  - Anaemia [Recovered/Resolved]
  - Bronchitis [Recovered/Resolved]
  - Bronchiolitis [Recovered/Resolved]
  - Pyrexia [Recovered/Resolved]

NARRATIVE: CASE EVENT DATE: 20170218
